FAERS Safety Report 17650105 (Version 4)
Quarter: 2020Q2

REPORT INFORMATION
  Report Type: Spontaneous
  Country: US (occurrence: US)
  Receive Date: 20200409
  Receipt Date: 20200604
  Transmission Date: 20200713
  Serious: Yes (Hospitalization)
  Sender: FDA-Public Use
  Company Number: US-PFIZER INC-2016545744

PATIENT
  Age: 54 Year
  Sex: Female

DRUGS (4)
  1. MS CONTIN [Concomitant]
     Active Substance: MORPHINE SULFATE
     Indication: PAIN
     Dosage: 30 MG, 3X/DAY (1 TABLET EVERY 8HRS)
     Route: 048
     Dates: start: 20161007
  2. MSIR [Concomitant]
     Active Substance: MORPHINE SULFATE
     Indication: PAIN
     Dosage: 30 MG, AS NEEDED (1 TABLET EVERY 4-6 HOURS, PRN, MAX. 4/DAY)
     Route: 048
     Dates: start: 20161007
  3. TIZANIDINE. [Concomitant]
     Active Substance: TIZANIDINE
     Dosage: 4 MG, 2X/DAY (TAKE ORALLY 1 TABLET BID, 2 TABS AT BEDTIME)
     Route: 048
     Dates: start: 20161007
  4. LYRICA [Suspect]
     Active Substance: PREGABALIN
     Dosage: 50 MG, 4X/DAY
     Route: 048
     Dates: start: 20161007

REACTIONS (1)
  - SARS-CoV-2 test positive [Unknown]
